FAERS Safety Report 13615795 (Version 1)
Quarter: 2017Q2

REPORT INFORMATION
  Report Type: Report from Study
  Country: None (occurrence: US)
  Receive Date: 20170606
  Receipt Date: 20170606
  Transmission Date: 20170830
  Serious: Yes (Hospitalization)
  Sender: FDA-Public Use
  Company Number: US-ABBVIE-17K-163-1997981-00

PATIENT
  Age: 70 Year
  Sex: Male
  Weight: 99.88 kg

DRUGS (2)
  1. HUMIRA [Suspect]
     Active Substance: ADALIMUMAB
     Indication: RHEUMATOID ARTHRITIS
     Route: 058
  2. UNKNOWN INSULIN [Concomitant]
     Active Substance: INSULIN NOS
     Indication: DIABETES MELLITUS

REACTIONS (5)
  - Paralysis [Not Recovered/Not Resolved]
  - Carotid artery occlusion [Recovered/Resolved]
  - Abasia [Not Recovered/Not Resolved]
  - Thrombotic stroke [Recovering/Resolving]
  - Cardiac procedure complication [Recovered/Resolved]

NARRATIVE: CASE EVENT DATE: 200908
